FAERS Safety Report 9859201 (Version 2)
Quarter: 2014Q1

REPORT INFORMATION
  Report Type: Report from Study
  Country: DE (occurrence: DE)
  Receive Date: 20140131
  Receipt Date: 20140131
  Transmission Date: 20141002
  Serious: Yes (Hospitalization, Other)
  Sender: FDA-Public Use
  Company Number: DE-BRISTOL-MYERS SQUIBB COMPANY-19863372

PATIENT
  Age: 69 Year
  Sex: Male

DRUGS (9)
  1. ABATACEPT [Suspect]
     Indication: RHEUMATOID ARTHRITIS
  2. METHOTREXATE [Suspect]
     Indication: RHEUMATOID ARTHRITIS
  3. FOLIC ACID [Concomitant]
  4. VITAMIN D [Concomitant]
  5. DICLOFENAC [Concomitant]
  6. PANTOZOL [Concomitant]
  7. PREDNISONE [Concomitant]
  8. FERRO SANOL [Concomitant]
  9. MONO-EMBOLEX [Concomitant]

REACTIONS (6)
  - Prostate cancer [Recovered/Resolved]
  - Lymphocele [Unknown]
  - Wound dehiscence [Unknown]
  - Herpes zoster [Unknown]
  - Haemorrhagic anaemia [Unknown]
  - Urethritis [Unknown]
